FAERS Safety Report 4616401-2 (Version None)
Quarter: 2005Q1

REPORT INFORMATION
  Report Type: 
  Country: None (occurrence: None)
  Receive Date: 20050318
  Receipt Date: 20050305
  Transmission Date: 20050727
  Serious: Yes (Other)
  Sender: FDA-Public Use
  Company Number: 2005025442

PATIENT
  Age: 42 Year
  Sex: Female
  Weight: 75.7507 kg

DRUGS (7)
  1. CELEBREX [Suspect]
     Indication: OSTEOARTHRITIS
     Dosage: 400 MG (200 MG, 2 IN 1 D), ORAL
     Route: 048
     Dates: start: 19980601
  2. OXCARBAZEPINE (OXCARBAZEPINE) [Suspect]
     Indication: ILL-DEFINED DISORDER
     Dosage: ORAL
     Route: 048
     Dates: start: 20031201
  3. GABAPENTIN [Concomitant]
  4. CARBAMAZEPINE [Concomitant]
  5. LISINOPRIL [Concomitant]
  6. LIDOCAINE HYDROCHLORIDE [Concomitant]
  7. LANSOPRAZOLE [Concomitant]

REACTIONS (10)
  - ABDOMINAL NEOPLASM [None]
  - ARTHRALGIA [None]
  - BONE NEOPLASM [None]
  - HAEMATOMA [None]
  - NEUROMA [None]
  - OSTEOMYELITIS [None]
  - PARAESTHESIA [None]
  - POST PROCEDURAL COMPLICATION [None]
  - POSTOPERATIVE INFECTION [None]
  - RADICULOPATHY [None]
